FAERS Safety Report 22374179 (Version 3)
Quarter: 2023Q2

REPORT INFORMATION
  Report Type: Report from Study
  Country: IL (occurrence: None)
  Receive Date: 20230526
  Receipt Date: 20230613
  Transmission Date: 20230721
  Serious: Yes (Hospitalization)
  Sender: FDA-Public Use
  Company Number: IL-Eisai Medical Research-EC-2022-125822

PATIENT
  Age: 73 Year
  Sex: Male
  Weight: 61.2 kg

DRUGS (21)
  1. LENVATINIB [Suspect]
     Active Substance: LENVATINIB
     Indication: Adenocarcinoma gastric
     Route: 048
     Dates: start: 20220825, end: 20221008
  2. LENVATINIB [Suspect]
     Active Substance: LENVATINIB
     Indication: Oesophageal adenocarcinoma
  3. PEMBROLIZUMAB [Suspect]
     Active Substance: PEMBROLIZUMAB
     Indication: Adenocarcinoma gastric
     Route: 041
     Dates: start: 20220825, end: 20221003
  4. PEMBROLIZUMAB [Suspect]
     Active Substance: PEMBROLIZUMAB
     Indication: Oesophageal adenocarcinoma
     Route: 041
     Dates: start: 20221114
  5. LEUCOVORIN [Suspect]
     Active Substance: LEUCOVORIN
     Indication: Adenocarcinoma gastric
     Route: 042
     Dates: start: 20220825, end: 20221003
  6. LEUCOVORIN [Suspect]
     Active Substance: LEUCOVORIN
     Indication: Oesophageal adenocarcinoma
     Route: 042
     Dates: start: 20221018, end: 20221031
  7. OXALIPLATIN [Suspect]
     Active Substance: OXALIPLATIN
     Indication: Adenocarcinoma gastric
     Route: 042
     Dates: start: 20220825, end: 20221003
  8. OXALIPLATIN [Suspect]
     Active Substance: OXALIPLATIN
     Indication: Oesophageal adenocarcinoma
     Route: 042
     Dates: start: 20221018, end: 20221031
  9. FLUOROURACIL [Suspect]
     Active Substance: FLUOROURACIL
     Indication: Adenocarcinoma gastric
     Route: 040
     Dates: start: 20220825, end: 20221003
  10. FLUOROURACIL [Suspect]
     Active Substance: FLUOROURACIL
     Indication: Oesophageal adenocarcinoma
     Route: 042
     Dates: start: 20220825, end: 20221005
  11. FLUOROURACIL [Suspect]
     Active Substance: FLUOROURACIL
     Route: 040
     Dates: start: 20221018, end: 20221031
  12. FLUOROURACIL [Suspect]
     Active Substance: FLUOROURACIL
     Route: 042
     Dates: start: 20221018, end: 20221102
  13. ROSUVASTATIN CALCIUM [Concomitant]
     Active Substance: ROSUVASTATIN CALCIUM
     Dates: start: 20190721
  14. MAGNOX [Concomitant]
     Dates: start: 20220824, end: 20220922
  15. METOCLOPRAMIDE HYDROCHLORIDE [Concomitant]
     Active Substance: METOCLOPRAMIDE HYDROCHLORIDE
     Dates: start: 20220825, end: 20221114
  16. FEXOFENADINE [Concomitant]
     Active Substance: FEXOFENADINE HYDROCHLORIDE
     Dates: start: 20220920, end: 20221020
  17. AKYNZEO (NETUPITANT\PALONOSETRON) [Concomitant]
     Active Substance: NETUPITANT\PALONOSETRON
     Dates: start: 20220920, end: 20221114
  18. CLOBETASOL [Concomitant]
     Active Substance: CLOBETASOL
     Dates: start: 20220920, end: 20221124
  19. RAMIPRIL [Concomitant]
     Active Substance: RAMIPRIL
     Dates: start: 20220920
  20. DEXAMETHASONE [Concomitant]
     Active Substance: DEXAMETHASONE
     Dates: start: 20221003, end: 20221003
  21. ENSURE PLUS ADVANCE [Concomitant]
     Dates: start: 20220810

REACTIONS (1)
  - Pulmonary embolism [Recovered/Resolved]

NARRATIVE: CASE EVENT DATE: 20221006
